FAERS Safety Report 13989694 (Version 3)
Quarter: 2017Q4

REPORT INFORMATION
  Report Type: Spontaneous
  Country: JP (occurrence: JP)
  Receive Date: 20170920
  Receipt Date: 20171005
  Transmission Date: 20180321
  Serious: Yes (Life-Threatening, Other)
  Sender: FDA-Public Use
  Company Number: JP-PFIZER INC-2017400240

PATIENT
  Age: 52 Year
  Sex: Female

DRUGS (11)
  1. 5-FLUOROURACIL [Concomitant]
     Active Substance: FLUOROURACIL
     Indication: COLON CANCER
     Dosage: 400 MG/M2, CYCLIC
     Route: 042
     Dates: start: 200506
  2. CETIRIZINE [Concomitant]
     Active Substance: CETIRIZINE HYDROCHLORIDE
     Indication: ALLERGY PROPHYLAXIS
     Dosage: 10 MG, UNK
  3. OXALIPLATIN. [Suspect]
     Active Substance: OXALIPLATIN
     Indication: COLON CANCER
     Dosage: 140 MG, CYCLIC (7 COURSES TO ONSET) (IN 500 ML OF 5% GLUCOSE SOLUTION)
     Route: 042
     Dates: start: 200506
  4. IRINOTECAN HYDROCHLORIDE. [Concomitant]
     Active Substance: IRINOTECAN HYDROCHLORIDE
     Indication: METASTASES TO LUNG
     Dosage: UNK UNK, CYCLIC
     Dates: start: 200403
  5. DEXAMETHASONE. [Concomitant]
     Active Substance: DEXAMETHASONE
     Indication: ALLERGY PROPHYLAXIS
     Dosage: 5 MG, UNK
  6. HYDROXYZINE [Concomitant]
     Active Substance: HYDROXYZINE HYDROCHLORIDE
     Indication: ALLERGY PROPHYLAXIS
     Dosage: 50 MG, UNK
  7. OXALIPLATIN. [Suspect]
     Active Substance: OXALIPLATIN
     Dosage: 87.5 MG, CYCLIC
     Route: 042
  8. GLUCOSE [Concomitant]
     Active Substance: DEXTROSE
     Dosage: 500 ML, (0.28 MG/ML) 250 ML/HOUR (OXALIPLATIN 140 MG DISSOLVED IN 500 ML OF 5% GLUCOSE SOLUTION)
     Route: 042
  9. 5-FLUOROURACIL [Concomitant]
     Active Substance: FLUOROURACIL
     Indication: METASTASES TO LUNG
     Dosage: 600 MG/M2, UNK
     Route: 042
  10. LEVOFOLINATE CALCIUM [Concomitant]
     Active Substance: LEVOLEUCOVORIN CALCIUM
     Indication: COLON CANCER
     Dosage: UNK, CYCLIC
     Dates: start: 200403
  11. LEVOFOLINATE CALCIUM [Concomitant]
     Active Substance: LEVOLEUCOVORIN CALCIUM
     Indication: METASTASES TO LUNG
     Dosage: UNK
     Dates: start: 200506

REACTIONS (3)
  - Respiratory distress [Recovered/Resolved]
  - Anaphylactic shock [Recovered/Resolved]
  - Pruritus [Recovered/Resolved]

NARRATIVE: CASE EVENT DATE: 20050922
